FAERS Safety Report 24122109 (Version 1)
Quarter: 2024Q3

REPORT INFORMATION
  Report Type: Report from Study
  Country: DE (occurrence: DE)
  Receive Date: 20240722
  Receipt Date: 20240722
  Transmission Date: 20241016
  Serious: Yes (Other)
  Sender: JOHNSON AND JOHNSON
  Company Number: DE-JNJFOC-20240735564

PATIENT
  Age: 32 Year
  Sex: Male

DRUGS (11)
  1. BEDAQUILINE [Suspect]
     Active Substance: BEDAQUILINE
     Indication: Tuberculosis
     Route: 048
     Dates: start: 2015
  2. BEDAQUILINE [Suspect]
     Active Substance: BEDAQUILINE
     Route: 048
     Dates: start: 2017
  3. BEDAQUILINE [Suspect]
     Active Substance: BEDAQUILINE
     Route: 048
     Dates: start: 2019
  4. BEDAQUILINE [Suspect]
     Active Substance: BEDAQUILINE
     Dosage: 400 MG DAILY FOR 14 DAYS, THEN 100 MG DAILY
     Route: 048
     Dates: start: 2022
  5. LINEZOLID [Suspect]
     Active Substance: LINEZOLID
     Indication: Tuberculosis
     Route: 065
  6. LINEZOLID [Suspect]
     Active Substance: LINEZOLID
     Dosage: 450 MG OR 300 MG
     Route: 065
  7. LINEZOLID [Suspect]
     Active Substance: LINEZOLID
     Dates: start: 2015
  8. LINEZOLID [Suspect]
     Active Substance: LINEZOLID
     Dates: start: 2017
  9. LINEZOLID [Suspect]
     Active Substance: LINEZOLID
     Dates: start: 2019
  10. LINEZOLID [Suspect]
     Active Substance: LINEZOLID
     Dates: start: 2022
  11. PRETOMANID [Suspect]
     Active Substance: PRETOMANID
     Indication: Tuberculosis

REACTIONS (1)
  - Thrombocytopenia [Recovered/Resolved]
